FAERS Safety Report 22632340 (Version 1)
Quarter: 2023Q2

REPORT INFORMATION
  Report Type: Report from Study
  Country: US (occurrence: US)
  Receive Date: 20230623
  Receipt Date: 20230623
  Transmission Date: 20230722
  Serious: Yes (Other)
  Sender: FDA-Public Use
  Company Number: US-002147023-NVSC2023US139977

PATIENT
  Sex: Female

DRUGS (4)
  1. COSENTYX [Suspect]
     Active Substance: SECUKINUMAB
     Indication: Psoriasis
     Dosage: UNK
     Route: 065
  2. CLOBETASOL [Suspect]
     Active Substance: CLOBETASOL
     Indication: Psoriasis
     Dosage: UNK
     Route: 065
  3. TRIAMCINOLONE [Suspect]
     Active Substance: TRIAMCINOLONE
     Indication: Psoriasis
     Dosage: UNK
     Route: 065
  4. WELLBUTRIN SR [Suspect]
     Active Substance: BUPROPION HYDROCHLORIDE
     Indication: Psoriasis
     Dosage: UNK
     Route: 065

REACTIONS (10)
  - Squamous cell carcinoma [Unknown]
  - Hyperthyroidism [Unknown]
  - Seborrhoeic keratosis [Unknown]
  - Neoplasm [Unknown]
  - Actinic keratosis [Unknown]
  - Skin hyperpigmentation [Unknown]
  - Dysplastic naevus [Unknown]
  - Psoriasis [Unknown]
  - Skin exfoliation [Unknown]
  - Drug ineffective [Unknown]
